FAERS Safety Report 4585588-2 (Version None)
Quarter: 2005Q1

REPORT INFORMATION
  Report Type: 
  Country: None (occurrence: None)
  Receive Date: 20050214
  Receipt Date: 20050131
  Transmission Date: 20050727
  Serious: Yes (Other)
  Sender: FDA-Public Use
  Company Number: 2005024261

PATIENT
  Age: 55 Year
  Sex: Female
  Weight: 89.9 kg

DRUGS (11)
  1. GENOTROPIN [Suspect]
     Indication: HYPOPITUITARISM
     Dosage: 0.3 MG DAILY
     Dates: start: 20040630, end: 20040811
  2. CIMETIDINE [Concomitant]
  3. DEXAMETHASONE [Concomitant]
  4. LEVOTHYROXINE SODIUM [Concomitant]
  5. BEZAFIBRATE (BEZAFIBRATE) [Concomitant]
  6. OMEPRAZOLE [Concomitant]
  7. HYDROCORTISONE [Concomitant]
  8. DESMOPRESSIN (DESMOPRESSIN) [Concomitant]
  9. CYCLO-PROGYNOVA (ESTRADIOL VALERATE, LEVONORGESTREL) [Concomitant]
  10. DIDRONEL PMO ^NORWICH EATON^ (CALCIUM CARBONATE, ETIDRONATE DISODIUM) [Concomitant]
  11. BEZAFIBRATE (BEZAFIBRATE) [Concomitant]

REACTIONS (6)
  - BLOOD TESTOSTERONE DECREASED [None]
  - FATIGUE [None]
  - HEADACHE [None]
  - HYPERHIDROSIS [None]
  - LIBIDO DECREASED [None]
  - SLEEP DISORDER [None]
